FAERS Safety Report 23592863 (Version 1)
Quarter: 2024Q1

REPORT INFORMATION
  Report Type: Spontaneous
  Country: US (occurrence: None)
  Receive Date: 20240303
  Receipt Date: 20240303
  Transmission Date: 20240410
  Serious: Yes (Life-Threatening, Disabling)
  Sender: FDA-Public Use
  Company Number: None

PATIENT
  Age: 31 Year
  Sex: Male
  Weight: 62.1 kg

DRUGS (1)
  1. XCOPRI [Suspect]
     Active Substance: CENOBAMATE
     Indication: Epilepsy
     Dosage: OTHER QUANTITY : 1 TABLET(S);?FREQUENCY : DAILY;?
     Route: 048
     Dates: start: 20240214, end: 20240303

REACTIONS (9)
  - Diplopia [None]
  - Headache [None]
  - Anger [None]
  - Suicidal ideation [None]
  - Tremor [None]
  - Asthenia [None]
  - Loss of consciousness [None]
  - Aggression [None]
  - Therapy cessation [None]

NARRATIVE: CASE EVENT DATE: 20240219
